FAERS Safety Report 15537940 (Version 6)
Quarter: 2019Q1

REPORT INFORMATION
  Report Type: Spontaneous
  Country: US (occurrence: US)
  Receive Date: 20181022
  Receipt Date: 20190211
  Transmission Date: 20190417
  Serious: No
  Sender: FDA-Public Use
  Company Number: US-SA-2018SA288797

PATIENT
  Age: 67 Year
  Sex: Female

DRUGS (1)
  1. PRALUENT [Suspect]
     Active Substance: ALIROCUMAB
     Indication: HYPERLIPIDAEMIA
     Dosage: 75 MG, QOW
     Route: 058
     Dates: start: 20180905

REACTIONS (7)
  - Weight increased [Unknown]
  - Fatigue [Unknown]
  - Muscular weakness [Unknown]
  - Dyspnoea [Unknown]
  - Discomfort [Unknown]
  - Neck pain [Unknown]
  - Musculoskeletal pain [Unknown]
